FAERS Safety Report 15345835 (Version 2)
Quarter: 2018Q4

REPORT INFORMATION
  Report Type: Spontaneous
  Country: DE (occurrence: DE)
  Receive Date: 20180904
  Receipt Date: 20181213
  Transmission Date: 20190204
  Serious: Yes (Hospitalization, Congenital Anomaly, Other)
  Sender: FDA-Public Use
  Company Number: DE-SUN PHARMACEUTICAL INDUSTRIES LTD-2018RR-183276

PATIENT

DRUGS (3)
  1. IBUPROFEN. [Suspect]
     Active Substance: IBUPROFEN
     Indication: EXPOSURE DURING PREGNANCY
     Dosage: DOSAGE FORM: UNSPECIFIED, DAILY DOSE TEXT: INTRA-UTERINE ()
     Route: 065
  2. IBUPROFEN. [Suspect]
     Active Substance: IBUPROFEN
     Indication: HEADACHE
     Dosage: UNK ()
     Route: 064
  3. IBUPROFEN. [Suspect]
     Active Substance: IBUPROFEN
     Dosage: UNK ()
     Route: 064

REACTIONS (12)
  - Apgar score low [Unknown]
  - Premature baby [Unknown]
  - Ductus arteriosus stenosis foetal [Unknown]
  - Exposure during pregnancy [Unknown]
  - Pulmonary valve incompetence [Unknown]
  - Neonatal cardiac failure [Recovered/Resolved]
  - Cardiomegaly [Unknown]
  - Right ventricular hypertrophy [Unknown]
  - Ductus arteriosus premature closure [Unknown]
  - Cardiac hypertrophy [Not Recovered/Not Resolved]
  - Maternal exposure timing unspecified [Unknown]
  - Tricuspid valve incompetence [Unknown]
